FAERS Safety Report 5842382-X (Version None)
Quarter: 2008Q3

REPORT INFORMATION
  Report Type: 
  Country: None (occurrence: None)
  Receive Date: 20080812
  Receipt Date: 20080812
  Transmission Date: 20090109
  Serious: Yes (Life-Threatening, Hospitalization)
  Sender: FDA-Public Use
  Company Number: JP-BOEHRINGER INGELHEIM GMBH, GERMANY-2008-BP-05497NB

PATIENT
  Sex: Female
  Weight: 50 kg

DRUGS (9)
  1. MICARDIS [Suspect]
     Indication: HYPERTENSION
     Route: 048
     Dates: start: 20070202, end: 20080131
  2. ENALAPRIL MALEATE [Suspect]
     Indication: HYPERTENSION
     Route: 048
     Dates: end: 20080131
  3. NORVASC [Concomitant]
     Indication: HYPERTENSION
     Route: 048
  4. CONIEL [Concomitant]
     Indication: HYPERTENSION
     Route: 048
  5. CARDENALIN [Concomitant]
     Indication: HYPERTENSION
     Route: 048
  6. SELECTOL [Concomitant]
     Indication: HYPERTENSION
     Route: 048
  7. BUFFERIN [Concomitant]
     Route: 048
  8. OMEPRAZOLE [Concomitant]
     Indication: PROPHYLAXIS
     Route: 048
  9. INSULIN [Concomitant]
     Route: 042

REACTIONS (3)
  - BRADYCARDIA [None]
  - CONCOMITANT DISEASE PROGRESSION [None]
  - HYPERKALAEMIA [None]
